FAERS Safety Report 24784094 (Version 1)
Quarter: 2024Q4

REPORT INFORMATION
  Report Type: Spontaneous
  Country: CH (occurrence: CH)
  Receive Date: 20241227
  Receipt Date: 20241227
  Transmission Date: 20250115
  Serious: Yes (Hospitalization)
  Sender: TEVA
  Company Number: None

PATIENT
  Age: 62 Year
  Sex: Male
  Weight: 83.7 kg

DRUGS (3)
  1. AMOXICILLIN\CLAVULANIC ACID [Suspect]
     Active Substance: AMOXICILLIN\CLAVULANIC ACID
     Indication: Abscess jaw
     Dosage: TIME INTERVAL: TOTAL: 2.2G, CO AMOXI MEPHA
     Route: 040
     Dates: start: 20241025, end: 20241025
  2. IOMEPROL [Suspect]
     Active Substance: IOMEPROL
     Indication: Scan with contrast
     Dosage: TIME INTERVAL: TOTAL
     Route: 040
     Dates: start: 20241025, end: 20241025
  3. AMOXICILLIN\CLAVULANATE POTASSIUM [Suspect]
     Active Substance: AMOXICILLIN\CLAVULANATE POTASSIUM
     Indication: Abscess jaw
     Route: 048
     Dates: start: 20241018, end: 20241025

REACTIONS (1)
  - Rash maculo-papular [Recovered/Resolved]

NARRATIVE: CASE EVENT DATE: 20241025
